FAERS Safety Report 10196755 (Version 1)
Quarter: 2014Q2

REPORT INFORMATION
  Report Type: Spontaneous
  Country: US (occurrence: None)
  Receive Date: 20140523
  Receipt Date: 20140523
  Transmission Date: 20141212
  Serious: Yes (Death)
  Sender: FDA-Public Use
  Company Number: None

PATIENT
  Age: 76 Year
  Sex: Female
  Weight: 118 kg

DRUGS (2)
  1. FERAHEME [Suspect]
     Indication: IRON DEFICIENCY ANAEMIA
     Route: 042
     Dates: start: 20140416, end: 20140501
  2. ASPIRIN [Concomitant]

REACTIONS (6)
  - Tachypnoea [None]
  - Respiratory failure [None]
  - Cardio-respiratory arrest [None]
  - Cardiac failure congestive [None]
  - Dyspepsia [None]
  - Procedural complication [None]
